FAERS Safety Report 11303505 (Version 1)
Quarter: 2015Q3

REPORT INFORMATION
  Report Type: Spontaneous
  Country: US (occurrence: US)
  Receive Date: 20150723
  Receipt Date: 20150723
  Transmission Date: 20151125
  Serious: No
  Sender: FDA-Public Use
  Company Number: US-JNJFOC-20141217997

PATIENT
  Age: 70 Year
  Sex: Female
  Weight: 113.4 kg

DRUGS (5)
  1. ZYRTEC [Suspect]
     Active Substance: CETIRIZINE HYDROCHLORIDE
     Route: 048
  2. CARDIZEM [Concomitant]
     Active Substance: DILTIAZEM HYDROCHLORIDE
     Indication: HYPERTENSION
     Dosage: INTERVAL - 5 YEARS
     Route: 065
  3. ZYRTEC [Suspect]
     Active Substance: CETIRIZINE HYDROCHLORIDE
     Indication: RHINORRHOEA
     Dosage: DOSAGE - 1 TABLET????INTERVAL - ONE TIME
     Route: 048
     Dates: start: 20141222
  4. LISINOPRIL. [Concomitant]
     Active Substance: LISINOPRIL
     Indication: HYPERTENSION
     Dosage: DOSAGE -  1-2 X DAY????INTERVAL - 3 YEARS
     Route: 065
  5. NOVOLIN NOS [Concomitant]
     Indication: DIABETES MELLITUS
     Dosage: INTERVAL - 2 YEARS
     Route: 065

REACTIONS (3)
  - Drug ineffective [Unknown]
  - Product contamination physical [Unknown]
  - Product blister packaging issue [Unknown]

NARRATIVE: CASE EVENT DATE: 20141222
